FAERS Safety Report 7562392-4 (Version None)
Quarter: 2011Q2

REPORT INFORMATION
  Report Type: 
  Country: None (occurrence: None)
  Receive Date: 20110622
  Receipt Date: 20110620
  Transmission Date: 20111010
  Serious: Yes (Hospitalization)
  Sender: FDA-Public Use
  Company Number: PH-ABBOTT-11P-128-0727261-00

PATIENT
  Sex: Female
  Weight: 50 kg

DRUGS (1)
  1. VALPROATE SODIUM [Suspect]
     Indication: JUVENILE MYOCLONIC EPILEPSY
     Dosage: 750MG DAILY, 15MG/KG/DAY
     Route: 048
     Dates: start: 20110420, end: 20110519

REACTIONS (2)
  - DRUG HYPERSENSITIVITY [None]
  - RASH GENERALISED [None]
